FAERS Safety Report 15533245 (Version 1)
Quarter: 2018Q4

REPORT INFORMATION
  Report Type: Report from Study
  Country: NL (occurrence: NL)
  Receive Date: 20181019
  Receipt Date: 20181019
  Transmission Date: 20190205
  Serious: Yes (Death)
  Sender: FDA-Public Use
  Company Number: NL-IPSEN BIOPHARMACEUTICALS, INC.-2018-02861

PATIENT
  Age: 90 Year
  Sex: Male

DRUGS (5)
  1. HYDROXOCOBALAMINE [Concomitant]
     Active Substance: HYDROXOCOBALAMIN
     Dosage: 500 UG/ML AMP 2 ML; ACCORDING TO SCHEDULE
  2. PAMORELIN [Suspect]
     Active Substance: TRIPTORELIN PAMOATE
     Route: 058
     Dates: start: 201804, end: 2018
  3. ACENOCOUMAROL [Concomitant]
     Active Substance: ACENOCOUMAROL
     Route: 048
  4. NADROPARINE [Concomitant]
     Active Substance: NADROPARIN
     Dosage: NADROPARINE INJVL WWSP 5700IE = 0.6 ML (9500IE/ML)?FREQUENCY: 2 D 1 INJ
  5. PAMORELIN [Suspect]
     Active Substance: TRIPTORELIN PAMOATE
     Indication: PROSTATE CANCER
     Dosage: 11.25MG
     Route: 058
     Dates: start: 20171127, end: 201801

REACTIONS (2)
  - Gout [Not Recovered/Not Resolved]
  - Death [Fatal]

NARRATIVE: CASE EVENT DATE: 2018
